FAERS Safety Report 11097926 (Version 1)
Quarter: 2015Q2

REPORT INFORMATION
  Report Type: Spontaneous
  Country: FR (occurrence: FR)
  Receive Date: 20150507
  Receipt Date: 20150507
  Transmission Date: 20150821
  Serious: Yes (Hospitalization, Other)
  Sender: FDA-Public Use
  Company Number: FR-ELI_LILLY_AND_COMPANY-FR201504008432

PATIENT
  Age: 42 Year
  Sex: Male

DRUGS (7)
  1. CIALIS [Suspect]
     Active Substance: TADALAFIL
     Indication: PRODUCT USED FOR UNKNOWN INDICATION
     Dosage: UNK, UNKNOWN
     Route: 048
     Dates: start: 20150101, end: 20150101
  2. ZOPICLONE [Concomitant]
     Active Substance: ZOPICLONE
     Dosage: 7.5 MG, QD
     Route: 065
     Dates: start: 20141125
  3. DAFALGAN [Concomitant]
     Active Substance: ACETAMINOPHEN
     Dosage: 1 G, PRN
     Route: 065
     Dates: start: 20141124
  4. NOVORAPID [Concomitant]
     Active Substance: INSULIN ASPART
     Dosage: 8 IU, TID
     Route: 065
     Dates: start: 20141124
  5. LANTUS [Concomitant]
     Active Substance: INSULIN GLARGINE
     Dosage: 24 IU, WITHIN ONE HOUR
     Route: 065
     Dates: start: 20141124
  6. TOPALGIC                           /00599202/ [Concomitant]
     Active Substance: TRAMADOL
     Dosage: 50 MG, QD
     Route: 065
     Dates: start: 20150102
  7. FRAGMINE [Concomitant]
     Active Substance: DALTEPARIN SODIUM
     Dosage: 5000 IU, QD
     Route: 065
     Dates: start: 20141125

REACTIONS (4)
  - Diabetic retinopathy [Unknown]
  - Visual field defect [Unknown]
  - Papilloedema [Recovering/Resolving]
  - CSF protein increased [Unknown]

NARRATIVE: CASE EVENT DATE: 20150107
